FAERS Safety Report 7864760-X (Version None)
Quarter: 2011Q4

REPORT INFORMATION
  Report Type: 
  Country: None (occurrence: None)
  Receive Date: 20111028
  Receipt Date: 20111017
  Transmission Date: 20120403
  Serious: Yes (Other)
  Sender: FDA-Public Use
  Company Number: IE-ELI_LILLY_AND_COMPANY-IE201110004762

PATIENT
  Sex: Male

DRUGS (5)
  1. ZYPREXA [Suspect]
     Dosage: 5 MG, UNK
  2. VIAGRA [Concomitant]
     Indication: ERECTILE DYSFUNCTION
  3. ZYPREXA [Suspect]
     Dosage: 5 MG, UNK
  4. ZYPREXA [Suspect]
     Dosage: 5 MG, UNK
     Dates: end: 20050101
  5. ZYPREXA [Suspect]
     Dosage: 5 MG, UNK
     Dates: start: 20101001

REACTIONS (16)
  - FEELING ABNORMAL [None]
  - ABNORMAL BEHAVIOUR [None]
  - PHOTOPHOBIA [None]
  - ERECTION INCREASED [None]
  - PAINFUL ERECTION [None]
  - ERECTILE DYSFUNCTION [None]
  - WEIGHT INCREASED [None]
  - DIARRHOEA [None]
  - ASTHENIA [None]
  - NAUSEA [None]
  - HYPERHIDROSIS [None]
  - ADVERSE EVENT [None]
  - ARRHYTHMIA [None]
  - TREMOR [None]
  - MUSCULOSKELETAL STIFFNESS [None]
  - CONSTIPATION [None]
